FAERS Safety Report 7105222-7 (Version None)
Quarter: 2010Q4

REPORT INFORMATION
  Report Type: 
  Country: None (occurrence: None)
  Receive Date: 20101116
  Receipt Date: 20101103
  Transmission Date: 20110411
  Serious: No
  Sender: FDA-Public Use
  Company Number: US-JNJFOC-20101102337

PATIENT
  Sex: Male
  Weight: 77.11 kg

DRUGS (3)
  1. DURAGESIC-100 [Suspect]
     Indication: NERVE INJURY
     Route: 062
  2. DURAGESIC-100 [Suspect]
     Indication: TRIGEMINAL NEURALGIA
     Route: 062
  3. AZOPT [Concomitant]
     Indication: GLAUCOMA
     Route: 031

REACTIONS (4)
  - HOT FLUSH [None]
  - HYPERHIDROSIS [None]
  - PRODUCT ADHESION ISSUE [None]
  - WRONG TECHNIQUE IN DRUG USAGE PROCESS [None]
